FAERS Safety Report 14545549 (Version 2)
Quarter: 2018Q1

REPORT INFORMATION
  Report Type: Spontaneous
  Country: NL (occurrence: NL)
  Receive Date: 20180219
  Receipt Date: 20180313
  Transmission Date: 20180509
  Serious: Yes (Other)
  Sender: FDA-Public Use
  Company Number: NL-BRISTOL-MYERS SQUIBB COMPANY-BMS-2018-014800

PATIENT
  Age: 83 Year
  Sex: Male
  Weight: 76 kg

DRUGS (1)
  1. NIVOLUMAB [Suspect]
     Active Substance: NIVOLUMAB
     Indication: MESOTHELIOMA
     Dosage: UNK UNK, Q2WK
     Route: 065
     Dates: start: 20171113, end: 20180123

REACTIONS (2)
  - Radiculopathy [Recovered/Resolved]
  - Product use in unapproved indication [Unknown]

NARRATIVE: CASE EVENT DATE: 201711
